FAERS Safety Report 8577687-5 (Version None)
Quarter: 2012Q3

REPORT INFORMATION
  Report Type: 
  Country: None (occurrence: None)
  Receive Date: 20120807
  Receipt Date: 20120730
  Transmission Date: 20120928
  Serious: Yes (Other)
  Sender: FDA-Public Use
  Company Number: IT-BRISTOL-MYERS SQUIBB COMPANY-16824997

PATIENT

DRUGS (1)
  1. FLUOROURACIL [Suspect]
     Indication: RECTAL CANCER

REACTIONS (2)
  - DYSENTERY [None]
  - NAUSEA [None]
